FAERS Safety Report 15842393 (Version 1)
Quarter: 2018Q4

REPORT INFORMATION
  Report Type: Spontaneous
  Country: US (occurrence: US)
  Receive Date: 20181226
  Receipt Date: 20181226
  Transmission Date: 20190205
  Serious: Yes (Hospitalization)
  Sender: FDA-Public Use
  Company Number: None

PATIENT
  Age: 65 Year
  Weight: 53.98 kg

DRUGS (1)
  1. CUBICIN [Suspect]
     Active Substance: DAPTOMYCIN
     Indication: OSTEOMYELITIS
     Route: 042
     Dates: start: 20181123, end: 20181205

REACTIONS (4)
  - Blood creatinine increased [None]
  - Blood creatine phosphokinase increased [None]
  - Rhabdomyolysis [None]
  - Blood urea increased [None]

NARRATIVE: CASE EVENT DATE: 20181205
